FAERS Safety Report 5119584-3 (Version None)
Quarter: 2006Q3

REPORT INFORMATION
  Report Type: 
  Country: None (occurrence: None)
  Receive Date: 20060929
  Receipt Date: 20060921
  Transmission Date: 20061208
  Serious: Yes (Other)
  Sender: FDA-Public Use
  Company Number: 2006114798

PATIENT
  Age: 95 Year
  Sex: Female

DRUGS (3)
  1. XALATAN [Suspect]
     Dosage: OPHTHALMIC
     Route: 047
  2. DRUG, UNSPECIFIED [Concomitant]
  3. ALL OTHER THERAPEUTIC PRODUCTS [Concomitant]

REACTIONS (3)
  - BLINDNESS TRANSIENT [None]
  - PAIN [None]
  - VISION BLURRED [None]
